FAERS Safety Report 12089337 (Version 1)
Quarter: 2016Q1

REPORT INFORMATION
  Report Type: Spontaneous
  Country: US (occurrence: US)
  Receive Date: 20160218
  Receipt Date: 20160218
  Transmission Date: 20160526
  Serious: No
  Sender: FDA-Public Use
  Company Number: US-PERRIGO-15US010411

PATIENT
  Age: 67 Year
  Sex: Female
  Weight: 108.84 kg

DRUGS (3)
  1. CETIRIZINE HYDROCHLORIDE. [Suspect]
     Active Substance: CETIRIZINE HYDROCHLORIDE
     Indication: PERENNIAL ALLERGY
     Dosage: 10 MG, QD AT BEDTIME
     Route: 048
     Dates: start: 20150930
  2. SINGULAIR [Concomitant]
     Active Substance: MONTELUKAST SODIUM
     Indication: PERENNIAL ALLERGY
     Dosage: UNK
     Route: 065
  3. FLONASE                            /00908302/ [Concomitant]
     Active Substance: MOMETASONE FUROATE
     Indication: PERENNIAL ALLERGY
     Dosage: UNK
     Route: 065

REACTIONS (3)
  - Cough [Recovering/Resolving]
  - Drug administered to patient of inappropriate age [Unknown]
  - Aphonia [Recovering/Resolving]

NARRATIVE: CASE EVENT DATE: 20150930
